FAERS Safety Report 5818076-3 (Version None)
Quarter: 2008Q3

REPORT INFORMATION
  Report Type: 
  Country: None (occurrence: None)
  Receive Date: 20080722
  Receipt Date: 20080714
  Transmission Date: 20090109
  Serious: Yes (Other)
  Sender: FDA-Public Use
  Company Number: CO-BAXTER-2008BH007443

PATIENT
  Age: 83 Year
  Sex: Female

DRUGS (4)
  1. SODIUM CHLORIDE 0.9% IN PLASTIC CONTAINER [Suspect]
     Indication: MEDICATION DILUTION
     Dosage: DOSE UNIT:CUBIC CENTIMETER
     Route: 042
  2. CERNEVIT-12 [Suspect]
     Indication: VITAMIN SUPPLEMENTATION
     Route: 042
  3. TRACE ELEMENTS [Concomitant]
     Indication: VITAMIN SUPPLEMENTATION
     Route: 065
  4. C VITAMIN [Concomitant]
     Indication: VITAMIN SUPPLEMENTATION
     Route: 065

REACTIONS (2)
  - PHLEBITIS [None]
  - VENOUS OCCLUSION [None]
